FAERS Safety Report 6070477-7 (Version None)
Quarter: 2009Q1

REPORT INFORMATION
  Report Type: 
  Country: None (occurrence: None)
  Receive Date: 20090209
  Receipt Date: 20090202
  Transmission Date: 20090719
  Serious: Yes (Other)
  Sender: FDA-Public Use
  Company Number: US-GENENTECH-275777

PATIENT
  Sex: Female

DRUGS (10)
  1. OMALIZUMAB [Suspect]
     Indication: ASTHMA
     Dosage: 225 MG, Q2W
     Dates: start: 20051121, end: 20070104
  2. ALBUTEROL [Concomitant]
     Indication: ASTHMA
     Dosage: UNK
  3. ADVAIR DISKUS 100/50 [Concomitant]
     Indication: ASTHMA
     Dosage: UNK
  4. ALLEGRA D 24 HOUR [Concomitant]
     Indication: ASTHMA
  5. ASTELIN [Concomitant]
     Indication: ASTHMA
     Dosage: UNK
  6. FLONASE [Concomitant]
     Indication: ASTHMA
     Dosage: UNK
  7. EPIPEN [Concomitant]
     Indication: DRUG USE FOR UNKNOWN INDICATION
  8. MUCINEX [Concomitant]
     Indication: DRUG USE FOR UNKNOWN INDICATION
  9. PROTONIX [Concomitant]
     Indication: DRUG USE FOR UNKNOWN INDICATION
  10. PREDNISONE [Concomitant]
     Indication: DRUG USE FOR UNKNOWN INDICATION

REACTIONS (1)
  - HYPERSENSITIVITY [None]
